FAERS Safety Report 17826272 (Version 1)
Quarter: 2020Q2

REPORT INFORMATION
  Report Type: Report from Study
  Country: US (occurrence: US)
  Receive Date: 20200526
  Receipt Date: 20200526
  Transmission Date: 20200714
  Serious: Yes (Death, Life-Threatening, Hospitalization, Other)
  Sender: FDA-Public Use
  Company Number: US-SA-2020SA092788

PATIENT
  Age: 63 Year
  Sex: Male

DRUGS (31)
  1. PANTOPRAZOLE [Concomitant]
     Active Substance: PANTOPRAZOLE
     Indication: GASTROOESOPHAGEAL REFLUX DISEASE
  2. VANCOMYCIN [Concomitant]
     Active Substance: VANCOMYCIN
     Indication: ANTIBIOTIC THERAPY
  3. HYDROXYCHLOROQUINE [Concomitant]
     Active Substance: HYDROXYCHLOROQUINE
     Indication: CORONAVIRUS INFECTION
     Dosage: 200 MG, BID
     Route: 048
     Dates: start: 20200331, end: 20200403
  4. METHYLPREDNISOLONE. [Concomitant]
     Active Substance: METHYLPREDNISOLONE
     Indication: PNEUMONIA
     Dosage: UNK
  5. ZINC SULFATE. [Concomitant]
     Active Substance: ZINC SULFATE
     Indication: CORONAVIRUS INFECTION
     Dosage: 220 MG, QD
     Dates: start: 20200329, end: 20200403
  6. SENNA [SENNA ALEXANDRINA] [Concomitant]
     Active Substance: SENNA LEAF
     Indication: GASTROINTESTINAL MOTILITY DISORDER
  7. KETAMINE [Concomitant]
     Active Substance: KETAMINE
     Indication: SEDATION
  8. LOSARTAN. [Concomitant]
     Active Substance: LOSARTAN
     Indication: HYPERTENSION
     Dosage: 100 MG, QD END DATE: 03-APR-2020 00:00
     Route: 048
  9. FENTANYL. [Concomitant]
     Active Substance: FENTANYL
     Indication: SEDATION
  10. INSULIN [Concomitant]
     Active Substance: INSULIN NOS
     Indication: DIABETES MELLITUS
  11. ASCORBIC ACID. [Concomitant]
     Active Substance: ASCORBIC ACID
     Indication: VITAMIN SUPPLEMENTATION
  12. FUROSEMIDE. [Concomitant]
     Active Substance: FUROSEMIDE
     Indication: HYPOXIA
     Dosage: 20 MG, 1X
     Route: 042
     Dates: start: 20200403, end: 20200403
  13. ASPIRIN [ACETYLSALICYLIC ACID] [Concomitant]
     Active Substance: ASPIRIN
     Indication: CORONARY ARTERY DISEASE
     Dosage: 81 MG, QD
     Route: 048
  14. BENZONATATE. [Concomitant]
     Active Substance: BENZONATATE
     Indication: PROPHYLAXIS
     Dosage: 100 MG, TID
     Dates: start: 20200329, end: 20200403
  15. DEXMEDETOMIDINE. [Concomitant]
     Active Substance: DEXMEDETOMIDINE
     Indication: SEDATION
  16. ROCURONIUM [Concomitant]
     Active Substance: ROCURONIUM BROMIDE
     Indication: SEDATION
  17. ANAKINRA [Concomitant]
     Active Substance: ANAKINRA
     Indication: IMMUNOSUPPRESSION
     Dosage: 100 MG, QD
     Dates: start: 20200409, end: 20200413
  18. ATORVASTATIN [Concomitant]
     Active Substance: ATORVASTATIN
     Indication: BLOOD CHOLESTEROL
     Dosage: 10 MG, QD
     Dates: start: 20200329, end: 20200403
  19. ENOXAPARIN [Concomitant]
     Active Substance: ENOXAPARIN
     Dosage: 130 MG, QD
     Route: 058
     Dates: start: 20200403, end: 20200404
  20. FAMOTIDINE. [Concomitant]
     Active Substance: FAMOTIDINE
     Indication: PROPHYLAXIS
     Dosage: 20 MG
     Dates: start: 20200404, end: 20200414
  21. POLYETHYLENE GLYCOL [Concomitant]
     Active Substance: POLYETHYLENE GLYCOLS
     Indication: GASTROINTESTINAL MOTILITY DISORDER
     Dosage: 17 G, QD
     Dates: start: 20200404, end: 20200414
  22. SARILUMAB [Suspect]
     Active Substance: SARILUMAB
     Indication: CORONAVIRUS INFECTION
     Dosage: 400 MG, SINGLE, 1X
     Route: 042
     Dates: start: 20200402, end: 20200402
  23. ACETAMINOPHEN. [Concomitant]
     Active Substance: ACETAMINOPHEN
     Indication: PYREXIA
     Dosage: 650 MG, PRN (AS NECESSARY)
     Route: 048
     Dates: start: 20200329, end: 20200403
  24. ALBUTEROL [SALBUTAMOL] [Concomitant]
     Active Substance: ALBUTEROL
     Indication: PROPHYLAXIS
     Dosage: 90 UG, Q6H
     Route: 055
     Dates: start: 20200401, end: 20200404
  25. SENNA [SENNA ALEXANDRINA] [Concomitant]
     Active Substance: SENNA LEAF
     Indication: CARDIOGENIC SHOCK
  26. TOCILIZUMAB. [Concomitant]
     Active Substance: TOCILIZUMAB
     Indication: IMMUNOSUPPRESSION
  27. METHYLPREDNISOLONE. [Concomitant]
     Active Substance: METHYLPREDNISOLONE
     Indication: PROPHYLAXIS
     Dosage: 50 MG, BID; 650 MG, AS NECESSARY
     Route: 042
     Dates: start: 20200401, end: 20200404
  28. ENOXAPARIN [Concomitant]
     Active Substance: ENOXAPARIN
     Indication: THROMBOSIS PROPHYLAXIS
     Dosage: 40 MG, QD
     Route: 058
     Dates: start: 20200330, end: 20200403
  29. DEXTROMETHORPHAN HBR + GUAIFENESIN [Concomitant]
     Active Substance: DEXTROMETHORPHAN HYDROBROMIDE\GUAIFENESIN
     Indication: CORONAVIRUS INFECTION
     Dosage: 10 ML, AS NECESSARY
     Dates: start: 20200329, end: 20200403
  30. ALBUMIN (HUMAN) [Concomitant]
     Active Substance: ALBUMIN HUMAN
     Indication: FLUID IMBALANCE
     Dosage: 250 ML, SINGLE
     Dates: start: 20200403, end: 20200403
  31. CEFEPIME [Concomitant]
     Active Substance: CEFEPIME HYDROCHLORIDE
     Indication: PNEUMONIA

REACTIONS (7)
  - Hypoxia [Fatal]
  - Blood potassium increased [Not Recovered/Not Resolved]
  - Cardio-respiratory arrest [Fatal]
  - Diabetic ketoacidosis [Recovered/Resolved]
  - Alanine aminotransferase increased [Fatal]
  - Aspartate aminotransferase increased [Fatal]
  - Cardiogenic shock [Fatal]

NARRATIVE: CASE EVENT DATE: 20200402
